FAERS Safety Report 25934568 (Version 1)
Quarter: 2025Q4

REPORT INFORMATION
  Report Type: Spontaneous
  Country: CN (occurrence: CN)
  Receive Date: 20251017
  Receipt Date: 20251017
  Transmission Date: 20260117
  Serious: Yes (Other)
  Sender: BAYER HEALTHCARE PHARMACEUTICALS INC.
  Company Number: CN-BAYER-2025A136688

PATIENT
  Age: 65 Year
  Sex: Male
  Weight: 68 kg

DRUGS (1)
  1. AVELOX [Suspect]
     Active Substance: MOXIFLOXACIN HYDROCHLORIDE
     Indication: Cough
     Dosage: 0.4 G, QD
     Route: 048
     Dates: start: 20250119, end: 20250119

REACTIONS (8)
  - Dermatitis infected [Recovered/Resolved]
  - Rash maculo-papular [Recovered/Resolved]
  - Erythema [Recovered/Resolved]
  - Swelling face [Recovered/Resolved]
  - Respiratory rate increased [None]
  - Blood pressure diastolic increased [None]
  - Urine vitamin C present [None]
  - Product use in unapproved indication [None]

NARRATIVE: CASE EVENT DATE: 20250119
